FAERS Safety Report 21636162 (Version 5)
Quarter: 2024Q4

REPORT INFORMATION
  Report Type: Report from Study
  Country: US (occurrence: US)
  Receive Date: 20221123
  Receipt Date: 20241117
  Transmission Date: 20250115
  Serious: Yes (Hospitalization)
  Sender: SANOFI AVENTIS
  Company Number: US-SA-SAC20221122000742

PATIENT
  Age: 5 Year
  Sex: Male
  Weight: 14 kg

DRUGS (3)
  1. BELUMOSUDIL MESYLATE [Suspect]
     Active Substance: BELUMOSUDIL MESYLATE
     Indication: Chronic graft versus host disease
     Dosage: 100 MG, QD
     Route: 048
     Dates: start: 20220328
  2. BELUMOSUDIL MESYLATE [Suspect]
     Active Substance: BELUMOSUDIL MESYLATE
     Dosage: 200 MG, QD
  3. FENTANYL [Concomitant]
     Active Substance: FENTANYL
     Dosage: UNK

REACTIONS (9)
  - Gastroenteritis viral [Unknown]
  - Gastrointestinal disorder [Unknown]
  - Influenza [Unknown]
  - Gastrostomy [Unknown]
  - Gastric operation [Unknown]
  - Intestinal operation [Unknown]
  - Infection [Unknown]
  - Product use issue [Unknown]
  - Incorrect dose administered [Unknown]

NARRATIVE: CASE EVENT DATE: 20220328
